FAERS Safety Report 20126353 (Version 2)
Quarter: 2021Q4

REPORT INFORMATION
  Report Type: Spontaneous
  Country: US (occurrence: US)
  Receive Date: 20211129
  Receipt Date: 20211223
  Transmission Date: 20220304
  Serious: No
  Sender: FDA-Public Use
  Company Number: US-LUPIN PHARMACEUTICALS INC.-2021-23123

PATIENT

DRUGS (2)
  1. ALBUTEROL SULFATE [Suspect]
     Active Substance: ALBUTEROL SULFATE
     Indication: Product used for unknown indication
     Dosage: UNK (2 PUFFS BY MOUTH EVERY 4 TO 6 HOURS AS NEEDED.)
  2. ALBUTEROL SULFATE [Suspect]
     Active Substance: ALBUTEROL SULFATE
     Dosage: UNK (2 PUFFS BY MOUTH EVERY 4 TO 6 HOURS AS NEEDED.)

REACTIONS (2)
  - Device delivery system issue [Unknown]
  - No adverse event [Unknown]
